FAERS Safety Report 4807267-6 (Version None)
Quarter: 2005Q4

REPORT INFORMATION
  Report Type: 
  Country: None (occurrence: None)
  Receive Date: 20051020
  Receipt Date: 20051020
  Transmission Date: 20060501
  Serious: No
  Sender: FDA-Public Use
  Company Number: None

PATIENT
  Age: 59 Year
  Sex: Female
  Weight: 71 kg

DRUGS (11)
  1. FERRIC GLUCONATE [Suspect]
     Indication: IRON DEFICIENCY ANAEMIA
     Dosage: 250MG  IV
     Route: 042
     Dates: start: 20050919
  2. PREDNISONE TAB [Concomitant]
  3. LEVOTHYROXINE [Concomitant]
  4. AZATHIOPRINE [Concomitant]
  5. DARBEPOITIN [Concomitant]
  6. REMIPRIL [Concomitant]
  7. ATENOLOL [Concomitant]
  8. HYDROCHLOROTHIAZIDE [Concomitant]
  9. NIFEDIPINE [Concomitant]
  10. GLUCOSAMINE [Concomitant]
  11. SULFISOXAZOLE [Concomitant]

REACTIONS (4)
  - ERYTHEMA [None]
  - INFUSION RELATED REACTION [None]
  - OEDEMA PERIPHERAL [None]
  - PRURITUS [None]
